FAERS Safety Report 21597393 (Version 1)
Quarter: 2022Q4

REPORT INFORMATION
  Report Type: Spontaneous
  Country: US (occurrence: None)
  Receive Date: 20221111
  Receipt Date: 20221111
  Transmission Date: 20230113
  Serious: Yes (unspecified)
  Sender: FDA-Public Use
  Company Number: None

PATIENT
  Age: 19 Year
  Sex: Female
  Weight: 52.1 kg

DRUGS (2)
  1. TESTOSTERONE CYPIONATE [Suspect]
     Active Substance: TESTOSTERONE CYPIONATE
     Indication: Hormone therapy
     Dosage: 50 MG WEEKLY INTRAMUSCULAR?
     Route: 030
     Dates: start: 20220314
  2. DEVICE [Suspect]
     Active Substance: DEVICE

REACTIONS (2)
  - Incorrect dose administered [None]
  - Device dispensing error [None]

NARRATIVE: CASE EVENT DATE: 20221107
